FAERS Safety Report 19213936 (Version 1)
Quarter: 2021Q2

REPORT INFORMATION
  Report Type: Report from Study
  Country: None (occurrence: US)
  Receive Date: 20210505
  Receipt Date: 20210505
  Transmission Date: 20210717
  Serious: Yes (Other)
  Sender: FDA-Public Use
  Company Number: US-ABBVIE-21K-163-3881743-00

PATIENT
  Sex: Male

DRUGS (2)
  1. MARIJUANA [Concomitant]
     Active Substance: CANNABIS SATIVA SUBSP. INDICA TOP
     Indication: PRODUCT USED FOR UNKNOWN INDICATION
  2. HUMIRA [Suspect]
     Active Substance: ADALIMUMAB
     Indication: RHEUMATOID ARTHRITIS
     Route: 058

REACTIONS (20)
  - Gastric neoplasm [Unknown]
  - Trigger finger [Unknown]
  - Attention deficit hyperactivity disorder [Unknown]
  - Prostatic disorder [Unknown]
  - Carpal tunnel syndrome [Unknown]
  - Hepatitis C [Unknown]
  - Arthralgia [Unknown]
  - Arthropathy [Unknown]
  - Foot fracture [Unknown]
  - Pain [Unknown]
  - Large intestine polyp [Unknown]
  - Deafness [Unknown]
  - Hypertension [Unknown]
  - Blood glucose abnormal [Unknown]
  - Carotid bruit [Unknown]
  - Depression [Unknown]
  - Gout [Unknown]
  - Renal failure [Unknown]
  - Iron deficiency [Unknown]
  - Unevaluable event [Unknown]
